FAERS Safety Report 7688534-8 (Version None)
Quarter: 2011Q3

REPORT INFORMATION
  Report Type: 
  Country: None (occurrence: None)
  Receive Date: 20110817
  Receipt Date: 20110817
  Transmission Date: 20111222
  Serious: Yes (Other)
  Sender: FDA-Public Use
  Company Number: None

PATIENT
  Sex: Female
  Weight: 57.606 kg

DRUGS (1)
  1. LATISSE [Suspect]
     Indication: MADAROSIS
     Dosage: ONE DROP
     Route: 050
     Dates: start: 20110401, end: 20110816

REACTIONS (2)
  - DIZZINESS [None]
  - VERTIGO [None]
